FAERS Safety Report 6496344-2 (Version None)
Quarter: 2009Q4

REPORT INFORMATION
  Report Type: 
  Country: None (occurrence: None)
  Receive Date: 20091209
  Receipt Date: 20091125
  Transmission Date: 20100525
  Serious: Yes (Life-Threatening, Hospitalization)
  Sender: FDA-Public Use
  Company Number: 1000006827

PATIENT
  Age: 69 Year
  Sex: Female
  Weight: 52 kg

DRUGS (12)
  1. CITALOPRAM HYDROBROMIDE [Suspect]
     Indication: PSYCHOTIC DISORDER DUE TO A GENERAL MEDICAL CONDITION
     Dosage: 30 MG (30 MG,1 IN 1 D),ORAL
     Route: 048
     Dates: start: 20080301
  2. ASPIRIN [Suspect]
     Indication: ISCHAEMIC HEART DISEASE PROPHYLAXIS
     Dosage: 100 MG (100 MG,1 IN 1 D),ORAL
     Route: 048
     Dates: start: 20080301, end: 20080530
  3. VOLTAREN [Suspect]
     Indication: BONE PAIN
     Dosage: 150 MG (75 MG,2 IN 1 D),ORAL
     Route: 048
     Dates: start: 20080301, end: 20080601
  4. EXELON [Suspect]
     Indication: DEMENTIA
     Dosage: 6 MG (3 MG,2 IN 1 D),ORAL
     Route: 048
     Dates: start: 20080301
  5. FERRO SANOL DUODENAL(CAPSULES) [Suspect]
     Dosage: 100 MG (100 MG,1 IN 1 D),ORAL
     Route: 048
     Dates: start: 20080301, end: 20080530
  6. CALCIMAGON-D3(CHEWABLE TABLET) [Concomitant]
  7. CLOZAPINE [Concomitant]
  8. DUROGESIC (POULTICE OR PATCH) [Concomitant]
  9. LACTULOSE [Concomitant]
  10. MADOPAR (TABLETS) [Concomitant]
  11. MOTILIUM [Concomitant]
  12. NEXIUM (TABLETS) [Concomitant]

REACTIONS (19)
  - ANAEMIA [None]
  - BLOOD CALCIUM DECREASED [None]
  - BLOOD CREATININE INCREASED [None]
  - BLOOD SODIUM INCREASED [None]
  - C-REACTIVE PROTEIN INCREASED [None]
  - CREATININE RENAL CLEARANCE DECREASED [None]
  - DECREASED APPETITE [None]
  - DEHYDRATION [None]
  - DISTURBANCE IN ATTENTION [None]
  - DIVERTICULUM INTESTINAL [None]
  - DRUG INTERACTION [None]
  - DUODENAL ULCER HAEMORRHAGE [None]
  - EROSIVE DUODENITIS [None]
  - FATIGUE [None]
  - GASTRITIS [None]
  - GENERAL PHYSICAL HEALTH DETERIORATION [None]
  - HELICOBACTER TEST POSITIVE [None]
  - HIATUS HERNIA [None]
  - WHITE BLOOD CELL COUNT INCREASED [None]
